FAERS Safety Report 5194674-8 (Version None)
Quarter: 2006Q4

REPORT INFORMATION
  Report Type: 
  Country: None (occurrence: None)
  Receive Date: 20061229
  Receipt Date: 20061220
  Transmission Date: 20070319
  Serious: Yes (Hospitalization)
  Sender: FDA-Public Use
  Company Number: PHBS2006JP19806

PATIENT

DRUGS (4)
  1. TEGRETOL [Suspect]
     Dosage: 200 MG/DAY
     Route: 048
  2. PARIET [Concomitant]
  3. EPADEL [Concomitant]
  4. CYANOCOBALAMIN [Concomitant]

REACTIONS (1)
  - HYPERCALCAEMIA [None]
